FAERS Safety Report 8698426 (Version 4)
Quarter: 2014Q3

REPORT INFORMATION
  Report Type: Spontaneous
  Country: US (occurrence: US)
  Receive Date: 20120802
  Receipt Date: 20140724
  Transmission Date: 20150326
  Serious: Yes (Hospitalization, Other)
  Sender: FDA-Public Use
  Company Number: US-009507513-2012SP011811

PATIENT
  Sex: Female
  Weight: 101.13 kg

DRUGS (2)
  1. FLAGYL [Concomitant]
     Active Substance: METRONIDAZOLE\METRONIDAZOLE HYDROCHLORIDE
     Dosage: 500 MG, BID
  2. NUVARING [Suspect]
     Active Substance: ETHINYL ESTRADIOL\ETONOGESTREL
     Indication: CONTRACEPTION
     Dosage: UNK
     Route: 067
     Dates: start: 200905, end: 20100317

REACTIONS (32)
  - Leukocytosis [Unknown]
  - Thrombectomy [Unknown]
  - High risk sexual behaviour [Unknown]
  - Vulvovaginitis [Unknown]
  - Coagulopathy [Unknown]
  - Neck pain [Unknown]
  - Thrombolysis [Unknown]
  - Pelvic pain [Unknown]
  - Enzyme abnormality [Unknown]
  - Deep vein thrombosis [Unknown]
  - Suicidal ideation [Unknown]
  - Gene mutation [Unknown]
  - Vena cava filter insertion [Unknown]
  - Rhinitis allergic [Unknown]
  - Post-traumatic stress disorder [Unknown]
  - Ovarian cyst [Unknown]
  - Breast pain [Recovered/Resolved]
  - Overweight [Unknown]
  - Headache [Unknown]
  - Thrombectomy [Unknown]
  - Breast discharge [Unknown]
  - Insomnia [Unknown]
  - Intervertebral disc protrusion [Unknown]
  - Road traffic accident [Unknown]
  - Impaired fasting glucose [Unknown]
  - Pulmonary embolism [Unknown]
  - Anxiety [Unknown]
  - Depression [Unknown]
  - Pharyngitis [Recovered/Resolved]
  - Pruritus [Unknown]
  - Vaginal infection [Unknown]
  - Diarrhoea [Recovered/Resolved]

NARRATIVE: CASE EVENT DATE: 2010
